FAERS Safety Report 19877187 (Version 1)
Quarter: 2021Q3

REPORT INFORMATION
  Report Type: Spontaneous
  Country: US (occurrence: US)
  Receive Date: 20210924
  Receipt Date: 20210924
  Transmission Date: 20211014
  Serious: No
  Sender: FDA-Public Use
  Company Number: US-JNJFOC-20210922000

PATIENT
  Age: 20 Year
  Sex: Female

DRUGS (1)
  1. MENS ROGAINE EXTRA STRENGTH [Suspect]
     Active Substance: MINOXIDIL
     Indication: ALOPECIA
     Route: 065
     Dates: start: 202107

REACTIONS (4)
  - Product use issue [Unknown]
  - Intentional product misuse [Unknown]
  - Alopecia [Unknown]
  - Product use in unapproved indication [Unknown]
